FAERS Safety Report 20999864 (Version 2)
Quarter: 2022Q3

REPORT INFORMATION
  Report Type: Spontaneous
  Country: US (occurrence: US)
  Receive Date: 20220623
  Receipt Date: 20220926
  Transmission Date: 20221026
  Serious: Yes (Hospitalization, Other)
  Sender: FDA-Public Use
  Company Number: US-PFIZER INC-202200634559

PATIENT
  Age: 59 Year
  Sex: Female

DRUGS (1)
  1. XELJANZ [Suspect]
     Active Substance: TOFACITINIB CITRATE
     Indication: Rheumatoid arthritis
     Dosage: 5 MG, 2X/DAY
     Route: 048
     Dates: start: 202202

REACTIONS (11)
  - Pneumonia [Unknown]
  - Blindness [Not Recovered/Not Resolved]
  - COVID-19 [Unknown]
  - Vision blurred [Unknown]
  - Migraine [Unknown]
  - Hepatic enzyme increased [Recovered/Resolved]
  - Renal function test abnormal [Recovered/Resolved]
  - Headache [Unknown]
  - Stress [Unknown]
  - Intervertebral disc disorder [Unknown]
  - Peripheral swelling [Unknown]

NARRATIVE: CASE EVENT DATE: 20220101
